FAERS Safety Report 9485306 (Version 3)
Quarter: 2013Q4

REPORT INFORMATION
  Report Type: Spontaneous
  Country: US (occurrence: US)
  Receive Date: 20130828
  Receipt Date: 20131004
  Transmission Date: 20140711
  Serious: No
  Sender: FDA-Public Use
  Company Number: US-009507513-1308USA012290

PATIENT
  Sex: Female
  Weight: 90.7 kg

DRUGS (3)
  1. IMPLANON [Suspect]
     Indication: CONTRACEPTION
     Dosage: UNK
  2. PRISTIQ [Concomitant]
     Dosage: 50 MG, QD
  3. METFORMIN [Concomitant]
     Dosage: 750 MG, QD

REACTIONS (1)
  - Amenorrhoea [Recovered/Resolved]
